FAERS Safety Report 14907661 (Version 1)
Quarter: 2018Q2

REPORT INFORMATION
  Report Type: Spontaneous
  Country: US (occurrence: US)
  Receive Date: 20180429
  Receipt Date: 20180429
  Transmission Date: 20180711
  Serious: No
  Sender: FDA-Public Use
  Company Number: None

PATIENT
  Age: 39 Year
  Sex: Male
  Weight: 76.5 kg

DRUGS (1)
  1. KANK-A [Suspect]
     Active Substance: BENZOCAINE
     Indication: APHTHOUS ULCER
     Dosage: ?          QUANTITY:1 LIQUID+APPLICATOR;?
     Route: 061
     Dates: start: 20180421, end: 20180422

REACTIONS (1)
  - Product packaging issue [None]

NARRATIVE: CASE EVENT DATE: 20180421
